FAERS Safety Report 22231430 (Version 1)
Quarter: 2023Q2

REPORT INFORMATION
  Report Type: Spontaneous
  Country: US (occurrence: US)
  Receive Date: 20230420
  Receipt Date: 20230420
  Transmission Date: 20230722
  Serious: Yes (Hospitalization, Other)
  Sender: FDA-Public Use
  Company Number: US-SA-SAC20230419000907

PATIENT
  Age: 56 Year
  Sex: Female

DRUGS (18)
  1. AUBAGIO [Suspect]
     Active Substance: TERIFLUNOMIDE
     Indication: Multiple sclerosis
     Dosage: 1 DF, QD
     Route: 048
  2. ATORVASTATIN CALCIUM [Concomitant]
     Active Substance: ATORVASTATIN CALCIUM
  3. LYRICA [Concomitant]
     Active Substance: PREGABALIN
  4. REQUIP [Concomitant]
     Active Substance: ROPINIROLE HYDROCHLORIDE
  5. BUSPIRONE [Concomitant]
     Active Substance: BUSPIRONE HYDROCHLORIDE
  6. MORPHINE SULFATE [Concomitant]
     Active Substance: MORPHINE SULFATE
  7. VICODIN [Concomitant]
     Active Substance: ACETAMINOPHEN\HYDROCODONE BITARTRATE
  8. MS CONTIN [Concomitant]
     Active Substance: MORPHINE SULFATE
  9. ACETAMINOPHEN\HYDROCODONE [Concomitant]
     Active Substance: ACETAMINOPHEN\HYDROCODONE
  10. VITAMIN D NOS [Concomitant]
     Active Substance: VITAMIN D NOS
  11. MODAFINIL [Concomitant]
     Active Substance: MODAFINIL
  12. CYCLOBENZAPRINE [Concomitant]
     Active Substance: CYCLOBENZAPRINE
  13. CLONAZEPAM [Concomitant]
     Active Substance: CLONAZEPAM
  14. PANTOPRAZOLE SODIUM [Concomitant]
     Active Substance: PANTOPRAZOLE SODIUM
  15. CELEBREX [Concomitant]
     Active Substance: CELECOXIB
  16. RIZATRIPTAN BENZOATE [Concomitant]
     Active Substance: RIZATRIPTAN BENZOATE
  17. SIMVASTATIN [Concomitant]
     Active Substance: SIMVASTATIN
  18. ASPIRIN [Concomitant]
     Active Substance: ASPIRIN

REACTIONS (2)
  - Multiple sclerosis [Unknown]
  - Visual impairment [Unknown]

NARRATIVE: CASE EVENT DATE: 20221001
